FAERS Safety Report 7997357-1 (Version None)
Quarter: 2011Q4

REPORT INFORMATION
  Report Type: 
  Country: None (occurrence: None)
  Receive Date: 20111221
  Receipt Date: 20111215
  Transmission Date: 20120403
  Serious: No
  Sender: FDA-Public Use
  Company Number: US-B.I. PHARMACEUTICALS,INC./RIDGEFIELD-2011-BP-28256BP

PATIENT
  Sex: Male

DRUGS (3)
  1. DICLOFENEC [Concomitant]
     Indication: ARTHRALGIA
  2. PRADAXA [Suspect]
     Indication: ATRIAL FIBRILLATION
     Dosage: 150 MG
     Route: 048
     Dates: start: 20111101
  3. PRILOSEC [Concomitant]
     Indication: DYSPEPSIA

REACTIONS (4)
  - ABDOMINAL DISCOMFORT [None]
  - DIARRHOEA [None]
  - ABDOMINAL DISTENSION [None]
  - RASH [None]
